FAERS Safety Report 4389133-6 (Version None)
Quarter: 2004Q2

REPORT INFORMATION
  Report Type: 
  Country: None (occurrence: None)
  Receive Date: 20040628
  Receipt Date: 20040614
  Transmission Date: 20050107
  Serious: Yes (Death)
  Sender: FDA-Public Use
  Company Number: 2004AC00142

PATIENT
  Age: 35 Year
  Sex: Female

DRUGS (6)
  1. QUETIAPINE [Suspect]
     Indication: BIPOLAR DISORDER
     Dosage: 400 MG DAILY PO
     Route: 048
  2. VALPROIC ACID [Suspect]
     Dosage: 1000 MG BID PO
     Route: 048
  3. VALPROIC ACID [Suspect]
     Dosage: 2250 MG DAILY PO
     Route: 048
  4. HALOPERIDOL [Concomitant]
  5. HALOPERIDOL [Concomitant]
  6. ACETAMINOPHEN [Concomitant]

REACTIONS (4)
  - DEHYDRATION [None]
  - DRUG LEVEL INCREASED [None]
  - PANCREATITIS ACUTE [None]
  - PLATELET COUNT DECREASED [None]
